FAERS Safety Report 24826975 (Version 1)
Quarter: 2025Q1

REPORT INFORMATION
  Report Type: Spontaneous
  Country: IT (occurrence: IT)
  Receive Date: 20250109
  Receipt Date: 20250109
  Transmission Date: 20250409
  Serious: Yes (Other)
  Sender: MYLAN
  Company Number: IT-UCBSA-2024068110

PATIENT
  Age: 52 Year
  Sex: Male

DRUGS (1)
  1. LEVETIRACETAM [Suspect]
     Active Substance: LEVETIRACETAM
     Indication: Seizure
     Dosage: 1000 MILLIGRAM, QD (1000 MILLIGRAM/DAY)
     Route: 065
     Dates: start: 2021

REACTIONS (1)
  - Clonic convulsion [Unknown]

NARRATIVE: CASE EVENT DATE: 20210601
